FAERS Safety Report 6545437-X (Version None)
Quarter: 2010Q1

REPORT INFORMATION
  Report Type: 
  Country: None (occurrence: None)
  Receive Date: 20100121
  Receipt Date: 20100113
  Transmission Date: 20100710
  Serious: Yes (Other)
  Sender: FDA-Public Use
  Company Number: US-PFIZER INC-2010005680

PATIENT
  Sex: Male
  Weight: 40 kg

DRUGS (16)
  1. VFEND [Suspect]
     Indication: ANTIFUNGAL PROPHYLAXIS
     Dosage: FREQUENCY: 2X/DAY,
     Route: 042
     Dates: start: 20091201
  2. MILNACIPRAN HYDROCHLORIDE [Concomitant]
     Dosage: UNK
  3. MICAFUNGIN [Concomitant]
     Dosage: UNK
  4. LINEZOLID [Concomitant]
     Dosage: UNK
  5. CALCIUM GLUCONATE [Concomitant]
     Dosage: UNK
  6. CALCIUM CITRATE [Concomitant]
     Dosage: UNK
  7. BACTRIM [Concomitant]
     Dosage: UNK
  8. MEROPENEM [Concomitant]
     Dosage: UNK
  9. ACICLOVIR [Concomitant]
     Dosage: UNK
  10. NOREPINEPHRINE [Concomitant]
     Dosage: UNK
  11. VASOPRESSIN AND ANALOGUES [Concomitant]
     Dosage: UNK
  12. MYCOPHENOLATE SODIUM [Concomitant]
     Dosage: UNK
  13. BORTEZOMIB [Concomitant]
     Dosage: UNK
  14. INSULIN [Concomitant]
     Dosage: UNK
  15. METHYLPREDNISOLONE [Concomitant]
     Dosage: UNK
  16. CIPROFLOXACIN [Concomitant]
     Dosage: UNK

REACTIONS (3)
  - DIASTOLIC HYPOTENSION [None]
  - HAEMOTHORAX [None]
  - HYPOTENSION [None]
